FAERS Safety Report 7505945-1 (Version None)
Quarter: 2011Q2

REPORT INFORMATION
  Report Type: 
  Country: None (occurrence: None)
  Receive Date: 20110526
  Receipt Date: 20110523
  Transmission Date: 20111010
  Serious: Yes (Hospitalization, Other)
  Sender: FDA-Public Use
  Company Number: US-ABBOTT-11P-163-0706942-00

PATIENT
  Age: 56 Year
  Sex: Female

DRUGS (10)
  1. ENALAPRIL MALEATE [Concomitant]
     Indication: PRODUCT USED FOR UNKNOWN INDICATION
  2. GLIBURIDE-METFORMIN [Concomitant]
     Indication: PRODUCT USED FOR UNKNOWN INDICATION
     Dosage: 5/500
  3. MULTIVIT [Concomitant]
     Indication: PRODUCT USED FOR UNKNOWN INDICATION
  4. LYRICA [Concomitant]
     Indication: PRODUCT USED FOR UNKNOWN INDICATION
  5. HUMIRA [Suspect]
     Indication: CROHN'S DISEASE
     Dates: start: 20101001
  6. VIT D [Concomitant]
     Indication: PRODUCT USED FOR UNKNOWN INDICATION
  7. HUMALOG [Concomitant]
     Indication: PRODUCT USED FOR UNKNOWN INDICATION
     Dosage: 75/25
  8. AMITRIPTYLINE HCL [Concomitant]
     Indication: PRODUCT USED FOR UNKNOWN INDICATION
  9. ZYRTEC [Concomitant]
     Indication: PRODUCT USED FOR UNKNOWN INDICATION
  10. PRILOSEC [Concomitant]
     Indication: PRODUCT USED FOR UNKNOWN INDICATION

REACTIONS (13)
  - SPINAL COMPRESSION FRACTURE [None]
  - ANAEMIA [None]
  - RESPIRATORY DISORDER [None]
  - HYPOAESTHESIA [None]
  - PYREXIA [None]
  - COUGH [None]
  - RESPIRATORY TRACT INFECTION [None]
  - SPUTUM DISCOLOURED [None]
  - POST PROCEDURAL HAEMORRHAGE [None]
  - DYSPNOEA [None]
  - ABDOMINAL DISCOMFORT [None]
  - PRODUCTIVE COUGH [None]
  - URINARY TRACT INFECTION [None]
